FAERS Safety Report 9416889 (Version 1)
Quarter: 2013Q3

REPORT INFORMATION
  Report Type: Spontaneous
  Country: JP (occurrence: JP)
  Receive Date: 20130724
  Receipt Date: 20130724
  Transmission Date: 20140515
  Serious: Yes (Hospitalization)
  Sender: FDA-Public Use
  Company Number: JP-JNJFOC-20130709666

PATIENT
  Age: 76 Year
  Sex: Female
  Weight: 68 kg

DRUGS (14)
  1. XARELTO [Suspect]
     Indication: CEREBROVASCULAR ACCIDENT PROPHYLAXIS
     Dosage: 150 MG CUMULATIVE DOSE
     Route: 048
     Dates: start: 20130513, end: 20130527
  2. XARELTO [Suspect]
     Indication: ATRIAL FIBRILLATION
     Dosage: 150 MG CUMULATIVE DOSE
     Route: 048
     Dates: start: 20130513, end: 20130527
  3. BAYASPIRIN [Interacting]
     Indication: PRODUCT USED FOR UNKNOWN INDICATION
     Route: 048
  4. CILNIDIPINE [Concomitant]
     Route: 048
  5. UNFRACTIONATED HEPARIN [Concomitant]
     Route: 065
     Dates: end: 20130513
  6. BROTIZOLAM [Concomitant]
     Route: 048
  7. FEMARA [Concomitant]
     Route: 048
  8. LAXOBERON [Concomitant]
     Route: 048
  9. FESIN [Concomitant]
     Indication: ANAEMIA
     Route: 065
     Dates: start: 20130420, end: 20130513
  10. MYOCOR [Concomitant]
     Route: 065
  11. ATORVASTATIN [Concomitant]
     Route: 048
  12. LASIX [Concomitant]
     Route: 048
  13. LASIX [Concomitant]
     Route: 048
  14. MAGLAX [Concomitant]
     Route: 048

REACTIONS (3)
  - Occult blood positive [Recovering/Resolving]
  - Haemoglobin decreased [Recovering/Resolving]
  - Drug interaction [Unknown]
